FAERS Safety Report 10042538 (Version 1)
Quarter: 2014Q1

REPORT INFORMATION
  Report Type: Spontaneous
  Country: US (occurrence: None)
  Receive Date: 20140325
  Receipt Date: 20140325
  Transmission Date: 20141002
  Serious: Yes (Life-Threatening)
  Sender: FDA-Public Use
  Company Number: FK201400981

PATIENT
  Age: 59 Year
  Sex: Female

DRUGS (3)
  1. LIDOCAINE / EPINEPHRINE [Suspect]
     Indication: PRODUCT USED FOR UNKNOWN INDICATION
  2. MIDAZOLAM (MIDAZOLAM) [Concomitant]
  3. FENTANYL (FENTANYL) [Concomitant]

REACTIONS (3)
  - Grand mal convulsion [None]
  - Heart rate increased [None]
  - Dementia [None]
